FAERS Safety Report 6910654-3 (Version None)
Quarter: 2010Q3

REPORT INFORMATION
  Report Type: 
  Country: None (occurrence: None)
  Receive Date: 20100806
  Receipt Date: 20100803
  Transmission Date: 20110219
  Serious: Yes (Hospitalization)
  Sender: FDA-Public Use
  Company Number: FR-ROCHE-718128

PATIENT
  Sex: Male
  Weight: 42 kg

DRUGS (8)
  1. BEVACIZUMAB [Suspect]
     Indication: NON-SMALL CELL LUNG CANCER
     Dosage: FREQUENCY EACH CYCLE LAST DOSE PRIOR TO SAE 07 JUL 2010
     Route: 042
     Dates: start: 20100414
  2. PEMETREXED [Suspect]
     Indication: NON-SMALL CELL LUNG CANCER
     Dosage: FREQUENCY EACH CYCLE, LAST DOSE PRIOR TO SAE ON 07 JUL 2010
     Route: 042
     Dates: start: 20100414
  3. CISPLATIN [Suspect]
     Indication: NON-SMALL CELL LUNG CANCER
     Dosage: FREQUENCY EACH CYCLE, LAST DOSE PRIOR TO SAE ON 07 JUL 2010
     Route: 042
     Dates: start: 20100414
  4. KALEORID [Concomitant]
  5. TRIVASTAL [Concomitant]
  6. SPECIAFOLDINE [Concomitant]
     Dosage: 1 TBS
     Dates: start: 20100408
  7. SOLUPRED [Concomitant]
     Dates: end: 20100722
  8. PLAVIX [Concomitant]

REACTIONS (1)
  - GENERAL PHYSICAL CONDITION ABNORMAL [None]
